FAERS Safety Report 7590457-X (Version None)
Quarter: 2011Q3

REPORT INFORMATION
  Report Type: 
  Country: None (occurrence: None)
  Receive Date: 20110705
  Receipt Date: 20110628
  Transmission Date: 20111222
  Serious: Yes (Death)
  Sender: FDA-Public Use
  Company Number: GB-ASTRAZENECA-2011SE38918

PATIENT
  Age: 38 Year
  Sex: Male

DRUGS (7)
  1. OMEPRAZOLE [Suspect]
     Route: 048
  2. METHADONE HCL [Suspect]
  3. ZYPREXA [Suspect]
  4. DIHYDROCODEINE BITARTRATE INJ [Suspect]
  5. DIAZEPAM [Suspect]
  6. CHLORDIAZEPOXIDE [Suspect]
  7. MIRTAZAPINE [Suspect]

REACTIONS (2)
  - INFLUENZA LIKE ILLNESS [None]
  - TOXICITY TO VARIOUS AGENTS [None]
